FAERS Safety Report 7207658-2 (Version None)
Quarter: 2011Q1

REPORT INFORMATION
  Report Type: 
  Country: None (occurrence: None)
  Receive Date: 20110103
  Receipt Date: 20101222
  Transmission Date: 20110831
  Serious: Yes (Disabling)
  Sender: FDA-Public Use
  Company Number: US-ASTRAZENECA-2010SE59180

PATIENT
  Age: 52 Year
  Sex: Male

DRUGS (7)
  1. AVODART [Concomitant]
     Indication: BENIGN PROSTATIC HYPERPLASIA
     Route: 048
  2. CRESTOR [Suspect]
     Route: 048
     Dates: start: 20081204
  3. CYMBALTA [Concomitant]
     Indication: DEPRESSION
     Route: 048
  4. PERCODAN-DEMI [Concomitant]
     Indication: PAIN
     Route: 048
  5. SOMA [Concomitant]
     Indication: MUSCLE RELAXANT THERAPY
     Dosage: DAILY
     Route: 048
  6. CRESTOR [Suspect]
     Route: 048
     Dates: start: 20090601
  7. LOTENSION [Concomitant]
     Indication: HYPERTENSION
     Route: 048

REACTIONS (1)
  - AMYOTROPHIC LATERAL SCLEROSIS [None]
